FAERS Safety Report 22292488 (Version 1)
Quarter: 2023Q2

REPORT INFORMATION
  Report Type: Spontaneous
  Country: US (occurrence: US)
  Receive Date: 20230508
  Receipt Date: 20230508
  Transmission Date: 20230721
  Serious: No
  Sender: FDA-Public Use
  Company Number: US-ViiV Healthcare Limited-95304

PATIENT
  Age: 52 Year
  Sex: Female

DRUGS (30)
  1. RILPIVIRINE [Suspect]
     Active Substance: RILPIVIRINE
     Indication: Product used for unknown indication
     Dosage: UNK
     Route: 042
     Dates: start: 20220222
  2. RILPIVIRINE [Suspect]
     Active Substance: RILPIVIRINE
     Dosage: 58504 (WEEKS)
     Route: 065
  3. RILPIVIRINE [Suspect]
     Active Substance: RILPIVIRINE
     Dosage: 58504 (WEEKS)
     Route: 065
  4. RILPIVIRINE [Suspect]
     Active Substance: RILPIVIRINE
     Dosage: 58504 (WEEKS)
     Route: 065
  5. RILPIVIRINE [Suspect]
     Active Substance: RILPIVIRINE
     Dosage: 58504 (WEEKS)
     Route: 065
  6. RILPIVIRINE [Suspect]
     Active Substance: RILPIVIRINE
     Dosage: 58504 (WEEKS)
     Route: 065
  7. RILPIVIRINE [Suspect]
     Active Substance: RILPIVIRINE
     Dosage: 58504 (WEEKS)
     Route: 065
  8. RILPIVIRINE [Suspect]
     Active Substance: RILPIVIRINE
     Dosage: 58504 (WEEKS)
     Route: 065
  9. RILPIVIRINE [Suspect]
     Active Substance: RILPIVIRINE
     Dosage: 58504 (WEEKS)
     Route: 065
  10. RILPIVIRINE [Suspect]
     Active Substance: RILPIVIRINE
     Dosage: 58504 (WEEKS)
     Route: 065
  11. RILPIVIRINE [Suspect]
     Active Substance: RILPIVIRINE
     Dosage: 58504 (WEEKS)
     Route: 065
  12. RILPIVIRINE [Suspect]
     Active Substance: RILPIVIRINE
     Dosage: 58504 (WEEKS)
     Route: 065
  13. RILPIVIRINE [Suspect]
     Active Substance: RILPIVIRINE
     Dosage: 58504 (WEEKS)
     Route: 065
  14. RILPIVIRINE [Suspect]
     Active Substance: RILPIVIRINE
     Dosage: 58504 (WEEKS)
     Route: 065
  15. RILPIVIRINE [Suspect]
     Active Substance: RILPIVIRINE
     Dosage: UNK, 400MG/600MG/2ML
     Route: 065
     Dates: start: 20230413
  16. CABOTEGRAVIR [Suspect]
     Active Substance: CABOTEGRAVIR
     Indication: Product used for unknown indication
     Dosage: UNK
     Route: 042
     Dates: start: 20220222
  17. CABOTEGRAVIR [Suspect]
     Active Substance: CABOTEGRAVIR
     Dosage: 58504 (WEEKS)
     Route: 065
  18. CABOTEGRAVIR [Suspect]
     Active Substance: CABOTEGRAVIR
     Dosage: 58504 (WEEKS)
     Route: 065
  19. CABOTEGRAVIR [Suspect]
     Active Substance: CABOTEGRAVIR
     Dosage: 58504 (WEEKS)
     Route: 065
  20. CABOTEGRAVIR [Suspect]
     Active Substance: CABOTEGRAVIR
     Dosage: 58504 (WEEKS)
     Route: 065
  21. CABOTEGRAVIR [Suspect]
     Active Substance: CABOTEGRAVIR
     Dosage: 58504 (WEEKS)
     Route: 065
  22. CABOTEGRAVIR [Suspect]
     Active Substance: CABOTEGRAVIR
     Dosage: 58504 (WEEKS)
     Route: 065
  23. CABOTEGRAVIR [Suspect]
     Active Substance: CABOTEGRAVIR
     Dosage: 58504 (WEEKS)
     Route: 065
  24. CABOTEGRAVIR [Suspect]
     Active Substance: CABOTEGRAVIR
     Dosage: 58504 (WEEKS)
     Route: 065
  25. CABOTEGRAVIR [Suspect]
     Active Substance: CABOTEGRAVIR
     Dosage: 58504 (WEEKS)
     Route: 065
  26. CABOTEGRAVIR [Suspect]
     Active Substance: CABOTEGRAVIR
     Dosage: 58504 (WEEKS)
     Route: 065
  27. CABOTEGRAVIR [Suspect]
     Active Substance: CABOTEGRAVIR
     Dosage: 58504 (WEEKS)
     Route: 065
  28. CABOTEGRAVIR [Suspect]
     Active Substance: CABOTEGRAVIR
     Dosage: 58504 (WEEKS)
     Route: 065
  29. CABOTEGRAVIR [Suspect]
     Active Substance: CABOTEGRAVIR
     Dosage: 58504 (WEEKS)
     Route: 065
  30. CABOTEGRAVIR [Suspect]
     Active Substance: CABOTEGRAVIR
     Dosage: UNK, 400MG/600MG/2ML
     Route: 065
     Dates: start: 20230413

REACTIONS (3)
  - Chest pain [Unknown]
  - Pain [Unknown]
  - Oxygen saturation decreased [Unknown]

NARRATIVE: CASE EVENT DATE: 20230413
